FAERS Safety Report 15387109 (Version 1)
Quarter: 2018Q3

REPORT INFORMATION
  Report Type: Spontaneous
  Country: US (occurrence: US)
  Receive Date: 20180914
  Receipt Date: 20180914
  Transmission Date: 20181010
  Serious: No
  Sender: FDA-Public Use
  Company Number: US-SA-2018SA256273

PATIENT
  Age: 73 Year
  Sex: Female

DRUGS (4)
  1. PRALUENT [Suspect]
     Active Substance: ALIROCUMAB
     Dosage: 75 MG, QOW
     Route: 058
     Dates: start: 201804
  2. PRALUENT [Suspect]
     Active Substance: ALIROCUMAB
     Dosage: 75 MG, QOW
     Route: 058
     Dates: start: 201804
  3. PRALUENT [Suspect]
     Active Substance: ALIROCUMAB
     Dosage: 150 UNK
     Route: 058
     Dates: start: 20180711
  4. PRALUENT [Suspect]
     Active Substance: ALIROCUMAB
     Dosage: 150 UNK
     Route: 058
     Dates: start: 20180711

REACTIONS (7)
  - Eyelid oedema [Unknown]
  - Pruritus [Unknown]
  - Oropharyngeal pain [Unknown]
  - Influenza [Unknown]
  - Rash [Unknown]
  - Decreased appetite [Unknown]
  - Urine flow decreased [Unknown]

NARRATIVE: CASE EVENT DATE: 201807
